FAERS Safety Report 23623591 (Version 1)
Quarter: 2024Q1

REPORT INFORMATION
  Report Type: Spontaneous
  Country: FR (occurrence: FR)
  Receive Date: 20240312
  Receipt Date: 20240312
  Transmission Date: 20240410
  Serious: Yes (Hospitalization)
  Sender: FDA-Public Use
  Company Number: FR-AFSSAPS-GR2023001488

PATIENT
  Age: 33 Year
  Sex: Female

DRUGS (20)
  1. METHYLPREDNISOLONE SODIUM SUCCINATE [Suspect]
     Active Substance: METHYLPREDNISOLONE SODIUM SUCCINATE
     Dosage: UNK
     Route: 042
     Dates: start: 20230516, end: 20230516
  2. METHYLPREDNISOLONE [Suspect]
     Active Substance: METHYLPREDNISOLONE
     Dosage: 500 MG
     Route: 042
     Dates: start: 20230426, end: 20230427
  3. OBINUTUZUMAB [Suspect]
     Active Substance: OBINUTUZUMAB
     Indication: Systemic lupus erythematosus
     Route: 042
     Dates: start: 20230426, end: 20230516
  4. OBINUTUZUMAB [Suspect]
     Active Substance: OBINUTUZUMAB
     Indication: Lupus nephritis
  5. SULFAMETHOXAZOLE AND TRIMETHOPRIM [Suspect]
     Active Substance: SULFAMETHOXAZOLE\TRIMETHOPRIM
     Indication: Neutropenia
     Dosage: 1 DF, 1X/DAY
     Route: 048
     Dates: start: 20230426, end: 20231011
  6. SULFAMETHOXAZOLE AND TRIMETHOPRIM [Suspect]
     Active Substance: SULFAMETHOXAZOLE\TRIMETHOPRIM
     Indication: Systemic lupus erythematosus
  7. IBUPROFEN [Suspect]
     Active Substance: IBUPROFEN
     Indication: Sinus pain
     Dosage: 400 MG, 3X/DAY
     Route: 048
     Dates: start: 20230930, end: 20231005
  8. IBUPROFEN [Suspect]
     Active Substance: IBUPROFEN
     Indication: Headache
     Dosage: 400 MG, 3X/DAY
     Route: 065
     Dates: start: 20230930, end: 20231005
  9. MYCOPHENOLATE MOFETIL [Suspect]
     Active Substance: MYCOPHENOLATE MOFETIL
     Indication: Lupus nephritis
     Dosage: 1G-500MG-1G
     Route: 048
     Dates: start: 202103, end: 20231011
  10. MYCOPHENOLATE MOFETIL [Suspect]
     Active Substance: MYCOPHENOLATE MOFETIL
     Indication: Systemic lupus erythematosus
     Dosage: 1000 MG IN THE MORNING, 500 MG AT NOON AND 1000 MG IN THE EVENING
     Route: 048
     Dates: start: 20210408, end: 20231011
  11. ENALAPRILAT [Concomitant]
     Active Substance: ENALAPRILAT
     Indication: Systemic lupus erythematosus
     Dates: start: 20210408
  12. DOLIPRANE [Concomitant]
     Active Substance: ACETAMINOPHEN
     Indication: Headache
     Dates: start: 20140205
  13. LOVENOX [Concomitant]
     Active Substance: ENOXAPARIN SODIUM
     Dates: start: 20231013, end: 20231017
  14. PREDNISONE [Concomitant]
     Active Substance: PREDNISONE
     Dosage: 5 MG
     Dates: start: 20210719
  15. PLAQUENIL [Concomitant]
     Active Substance: HYDROXYCHLOROQUINE SULFATE
     Dosage: 400 MG (2 TABLETS IN THE EVENING)
     Dates: start: 20200128
  16. CALTRATE [CALCIUM CARBONATE;COLECALCIFEROL] [Concomitant]
     Indication: Osteoporosis
     Dates: start: 20200316
  17. PHLOROGLUCINOL\1,3,5-TRIMETHOXYBENZENE [Concomitant]
     Active Substance: PHLOROGLUCINOL\1,3,5-TRIMETHOXYBENZENE
     Indication: Abdominal pain
     Dates: start: 20200724
  18. LEVOFLOXACIN [Concomitant]
     Active Substance: LEVOFLOXACIN
     Indication: Sinusitis
     Dates: start: 20231006, end: 20231011
  19. SYMBICORT [Concomitant]
     Active Substance: BUDESONIDE\FORMOTEROL FUMARATE DIHYDRATE
     Dates: start: 20131119
  20. EUPANTOL [Concomitant]
     Active Substance: PANTOPRAZOLE SODIUM
     Dates: start: 20160125, end: 20231011

REACTIONS (3)
  - Off label use [Unknown]
  - Agranulocytosis [Recovered/Resolved]
  - Pyrexia [Recovered/Resolved]

NARRATIVE: CASE EVENT DATE: 20230426
